FAERS Safety Report 8830162 (Version 1)
Quarter: 2012Q4

REPORT INFORMATION
  Report Type: 
  Country: US (occurrence: US)
  Receive Date: 20121008
  Receipt Date: 20121008
  Transmission Date: 20130627
  Serious: Yes (Other)
  Sender: FDA-Public Use
  Company Number: US-ASTRAZENECA-2012SE75272

PATIENT
  Age: 50 Year
  Sex: Female

DRUGS (6)
  1. SYMBICORT PMDI [Suspect]
     Indication: ASTHMA
     Dosage: 160/4.5 MCG, 1 INHALATION TWO TIMES A DAY
     Route: 055
     Dates: start: 20110720
  2. ADVAIR DISKUS [Concomitant]
     Dosage: 250/50 MCG, 1 PUFF DAILY
     Route: 055
     Dates: start: 20120830
  3. VENTOLIN HFA [Concomitant]
     Dosage: 108 MCG, 2 SOULTION 4 TIMES A DAY
     Route: 055
     Dates: start: 20120830
  4. IBUPROFEN [Concomitant]
     Route: 048
     Dates: start: 20110809
  5. PREDNISONE [Concomitant]
     Route: 048
     Dates: start: 20110720
  6. PROAIR HFA [Concomitant]
     Dosage: 108 MCG, 2 SOULTION EVERY 4 HOURS
     Route: 055
     Dates: start: 20110720

REACTIONS (5)
  - Thrombophlebitis [Unknown]
  - Infective exacerbation of chronic obstructive airways disease [Unknown]
  - Cystitis [Unknown]
  - Vulvovaginal candidiasis [Unknown]
  - Exposure to communicable disease [Unknown]
